FAERS Safety Report 17419530 (Version 1)
Quarter: 2020Q1

REPORT INFORMATION
  Report Type: Spontaneous
  Country: NL (occurrence: NL)
  Receive Date: 20200214
  Receipt Date: 20200214
  Transmission Date: 20200409
  Serious: Yes (Hospitalization)
  Sender: FDA-Public Use
  Company Number: NL-MYLANLABS-2020M1016206

PATIENT
  Sex: Female
  Weight: 49 kg

DRUGS (7)
  1. GLATIRAMEERACETAAT [Suspect]
     Active Substance: GLATIRAMER ACETATE
     Indication: MULTIPLE SCLEROSIS
     Dosage: 3X PER WEEK
     Route: 058
     Dates: start: 20191009, end: 20191015
  2. PREDNISOLON                        /00016201/ [Concomitant]
     Active Substance: PREDNISOLONE
  3. MELOXICAM. [Concomitant]
     Active Substance: MELOXICAM
     Dosage: UNK
  4. OXAZEPAM. [Concomitant]
     Active Substance: OXAZEPAM
     Dosage: UNK
  5. MOMETASON [Concomitant]
     Active Substance: MOMETASONE FUROATE
     Dosage: NEUSSPRAY 50UG/DO FL 140DO
  6. PANTOPRAZOL                        /01263201/ [Concomitant]
     Active Substance: PANTOPRAZOLE
     Dosage: UNK
  7. MONTELUKAST [Concomitant]
     Active Substance: MONTELUKAST SODIUM
     Dosage: OMHULD 10MG

REACTIONS (5)
  - Pyrexia [Unknown]
  - Decreased appetite [Unknown]
  - Hypertension [Unknown]
  - Nausea [Unknown]
  - Palpitations [Unknown]
